FAERS Safety Report 8771518 (Version 3)
Quarter: 2014Q3

REPORT INFORMATION
  Report Type: Spontaneous
  Country: US (occurrence: US)
  Receive Date: 20120906
  Receipt Date: 20140819
  Transmission Date: 20150326
  Serious: Yes (Hospitalization, Other)
  Sender: FDA-Public Use
  Company Number: US-009507513-1209USA001491

PATIENT
  Sex: Female
  Weight: 76.19 kg

DRUGS (1)
  1. NUVARING [Suspect]
     Active Substance: ETHINYL ESTRADIOL\ETONOGESTREL
     Indication: CONTRACEPTION
     Dosage: UNK
     Dates: start: 200501, end: 20110920

REACTIONS (5)
  - Intracranial pressure increased [Unknown]
  - Intracranial venous sinus thrombosis [Unknown]
  - Cerebral infarction [Unknown]
  - Cerebral haemorrhage [Unknown]
  - Papilloedema [Unknown]

NARRATIVE: CASE EVENT DATE: 20110907
